FAERS Safety Report 12408553 (Version 2)
Quarter: 2020Q2

REPORT INFORMATION
  Report Type: Report from Study
  Country: US (occurrence: US)
  Receive Date: 20160526
  Receipt Date: 20200402
  Transmission Date: 20200713
  Serious: No
  Sender: FDA-Public Use
  Company Number: GXBR2015US002669

PATIENT
  Age: 19 Year
  Sex: Female

DRUGS (5)
  1. AMITRIPTYLINE [Concomitant]
     Active Substance: AMITRIPTYLINE
     Indication: MIGRAINE WITH AURA
     Dosage: UNK
     Route: 048
  2. IBUPROFEN. [Concomitant]
     Active Substance: IBUPROFEN
     Indication: MIGRAINE WITH AURA
     Dosage: UNK
     Route: 048
  3. PROCHLORPERAZINE. [Concomitant]
     Active Substance: PROCHLORPERAZINE
     Indication: MIGRAINE WITH AURA
     Dosage: UNK
     Route: 048
  4. IMITREX [Concomitant]
     Active Substance: SUMATRIPTAN SUCCINATE
     Indication: MIGRAINE WITH AURA
     Dosage: UNK
     Route: 065
  5. SOMATROPIN (RHGH) LYOPHILIZED POWDER [Suspect]
     Active Substance: SOMATROPIN
     Indication: GROWTH HORMONE DEFICIENCY
     Dosage: 0.043 MG/KG, QD (10 MG/1.5 ML)
     Route: 058
     Dates: start: 20131219

REACTIONS (3)
  - Muscle tightness [Recovered/Resolved]
  - Concussion [Recovered/Resolved with Sequelae]
  - Arthralgia [Recovered/Resolved]

NARRATIVE: CASE EVENT DATE: 20151019
